FAERS Safety Report 7772733 (Version 3)
Quarter: 2013Q1

REPORT INFORMATION
  Report Type: Spontaneous
  Country: ZA (occurrence: ZA)
  Receive Date: 20110125
  Receipt Date: 20130326
  Transmission Date: 20140127
  Serious: No
  Sender: FDA-Public Use
  Company Number: ZA-JNJFOC-20110105493

PATIENT
  Sex: Female

DRUGS (6)
  1. DUROGESIC [Suspect]
     Indication: PAIN
     Dosage: PATIENT WAS USING THE 12.5 UG/HR AND 25 UG/HR PATCH TOGETHER
     Route: 062
  2. DUROGESIC [Suspect]
     Indication: PAIN
     Route: 062
  3. DUROGESIC [Suspect]
     Indication: PAIN
     Route: 062
  4. DUROGESIC [Suspect]
     Indication: PAIN
     Route: 062
     Dates: start: 20110119
  5. DOXYFENE [Concomitant]
     Indication: PAIN
     Route: 065
  6. VALIUM [Concomitant]
     Indication: PAIN
     Route: 065

REACTIONS (12)
  - Drug ineffective [Unknown]
  - Product quality issue [Unknown]
  - Wrong technique in drug usage process [Unknown]
  - Muscle spasms [Unknown]
  - Nausea [Unknown]
  - Hyperhidrosis [Unknown]
  - Feeling cold [Unknown]
  - Feeling hot [Unknown]
  - Cough [Unknown]
  - Muscle twitching [Unknown]
  - Fatigue [Unknown]
  - Amnesia [Unknown]
